FAERS Safety Report 9282508 (Version 4)
Quarter: 2013Q4

REPORT INFORMATION
  Report Type: Spontaneous
  Country: GB (occurrence: GB)
  Receive Date: 20130510
  Receipt Date: 20131127
  Transmission Date: 20140711
  Serious: Yes (Other)
  Sender: FDA-Public Use
  Company Number: GB-MPIJNJ-2013-03307

PATIENT
  Sex: 0

DRUGS (2)
  1. VELCADE [Suspect]
     Indication: PLASMA CELL MYELOMA
     Dosage: 1.3 MG/M2, CYCLIC
     Route: 065
  2. VELCADE [Suspect]
     Dosage: 0.7 MG/M2, CYCLIC
     Route: 065

REACTIONS (2)
  - Neuropathy peripheral [Unknown]
  - Pain [Unknown]
